FAERS Safety Report 6962178-5 (Version None)
Quarter: 2010Q3

REPORT INFORMATION
  Report Type: 
  Country: None (occurrence: None)
  Receive Date: 20100902
  Receipt Date: 20100826
  Transmission Date: 20110219
  Serious: Yes (Hospitalization, Other)
  Sender: FDA-Public Use
  Company Number: US-RB-013750-10

PATIENT
  Age: 42 Year
  Sex: Female

DRUGS (1)
  1. SUBOXONE [Suspect]
     Indication: DRUG DEPENDENCE
     Route: 060
     Dates: start: 20100727, end: 20100806

REACTIONS (5)
  - FATIGUE [None]
  - FEELING JITTERY [None]
  - NERVOUSNESS [None]
  - PANCREATITIS [None]
  - STRESS [None]
